FAERS Safety Report 9174010 (Version 1)
Quarter: 2013Q1

REPORT INFORMATION
  Report Type: Spontaneous
  Country: US (occurrence: None)
  Receive Date: 20130318
  Receipt Date: 20130318
  Transmission Date: 20140127
  Serious: Yes (Disabling)
  Sender: FDA-Public Use
  Company Number: None

PATIENT
  Age: 41 Year
  Sex: Male
  Weight: 88.45 kg

DRUGS (1)
  1. ATORVASTATIN [Suspect]
     Indication: BLOOD CHOLESTEROL INCREASED
     Dates: start: 20111101, end: 20121130

REACTIONS (7)
  - Pain in extremity [None]
  - Muscle twitching [None]
  - Dyskinesia [None]
  - Burning sensation [None]
  - Muscular weakness [None]
  - Muscle atrophy [None]
  - Product quality issue [None]
